FAERS Safety Report 25383751 (Version 1)
Quarter: 2025Q2

REPORT INFORMATION
  Report Type: Spontaneous
  Country: ES (occurrence: ES)
  Receive Date: 20250602
  Receipt Date: 20250602
  Transmission Date: 20250717
  Serious: Yes (Hospitalization)
  Sender: TAIHO ONCOLOGY INC
  Company Number: ES-MMM-Otsuka-LI6C8WUO

PATIENT
  Age: 79 Year
  Sex: Male

DRUGS (6)
  1. INQOVI [Suspect]
     Active Substance: CEDAZURIDINE\DECITABINE
     Indication: Acute myeloid leukaemia
     Route: 048
     Dates: start: 20250203
  2. INQOVI [Suspect]
     Active Substance: CEDAZURIDINE\DECITABINE
     Route: 048
     Dates: start: 20250310
  3. INQOVI [Suspect]
     Active Substance: CEDAZURIDINE\DECITABINE
     Route: 048
     Dates: start: 20250421
  4. METFORMIN [Concomitant]
     Active Substance: METFORMIN HYDROCHLORIDE
     Indication: Product used for unknown indication
     Dosage: 850 MG, BID (EVERY 12 H)
     Route: 065
  5. SIMVASTATIN [Concomitant]
     Active Substance: SIMVASTATIN
     Indication: Product used for unknown indication
     Route: 065
  6. ASPIRIN [Concomitant]
     Active Substance: ASPIRIN
     Indication: Product used for unknown indication
     Route: 065

REACTIONS (5)
  - Escherichia bacteraemia [Recovered/Resolved]
  - Pneumonia [Recovered/Resolved]
  - Febrile neutropenia [Recovered/Resolved]
  - Febrile neutropenia [Unknown]
  - Refractoriness to platelet transfusion [Recovered/Resolved]

NARRATIVE: CASE EVENT DATE: 20250301
